FAERS Safety Report 4922004-2 (Version None)
Quarter: 2006Q1

REPORT INFORMATION
  Report Type: 
  Country: None (occurrence: None)
  Receive Date: 20060222
  Receipt Date: 20060222
  Transmission Date: 20060701
  Serious: Yes (Hospitalization)
  Sender: FDA-Public Use
  Company Number: None

PATIENT
  Age: 28 Year
  Sex: Female
  Weight: 107 kg

DRUGS (11)
  1. OMNIPAQUE 300 [Suspect]
     Indication: DIAGNOSTIC PROCEDURE
     Dosage: 125 ML IV OTO
     Route: 042
     Dates: start: 20050902
  2. TYLENOL (CAPLET) [Concomitant]
  3. DILAUDID [Concomitant]
  4. REGLAN [Concomitant]
  5. PHENERGAN [Concomitant]
  6. ENOXAPARIN SODIUM [Concomitant]
  7. MORPHINE [Concomitant]
  8. VANCOMYCIN [Concomitant]
  9. DOXYCYCLINE [Concomitant]
  10. HYDROCODONE [Concomitant]
  11. CEFAZULIN [Concomitant]

REACTIONS (3)
  - CONTRAST MEDIA REACTION [None]
  - NEPHROPATHY [None]
  - RENAL FAILURE ACUTE [None]
